FAERS Safety Report 9438593 (Version 2)
Quarter: 2013Q3

REPORT INFORMATION
  Report Type: Spontaneous
  Country: FR (occurrence: FR)
  Receive Date: 20130802
  Receipt Date: 20130909
  Transmission Date: 20140515
  Serious: Yes (Death, Life-Threatening, Hospitalization)
  Sender: FDA-Public Use
  Company Number: FR-GLAXOSMITHKLINE-B0910440A

PATIENT
  Age: 80 Year
  Sex: Female

DRUGS (2)
  1. ARIXTRA [Suspect]
     Indication: THROMBOSIS PROPHYLAXIS
     Dosage: 2.5MG PER DAY
     Route: 058
     Dates: start: 20130629, end: 20130718
  2. KARDEGIC [Concomitant]

REACTIONS (11)
  - Cerebral haemorrhage [Fatal]
  - Nausea [Unknown]
  - Vomiting [Unknown]
  - Headache [Unknown]
  - Hemiplegia [Unknown]
  - Mydriasis [Unknown]
  - Haemorrhagic stroke [Unknown]
  - Renal failure [Unknown]
  - Cerebral haematoma [Unknown]
  - Miosis [Unknown]
  - Cardio-respiratory arrest [Unknown]
